FAERS Safety Report 11294496 (Version 1)
Quarter: 2015Q3

REPORT INFORMATION
  Report Type: Spontaneous
  Country: US (occurrence: US)
  Receive Date: 20150722
  Receipt Date: 20150722
  Transmission Date: 20151125
  Serious: No
  Sender: FDA-Public Use
  Company Number: US-ELI_LILLY_AND_COMPANY-US200808000281

PATIENT
  Age: 83 Year
  Sex: Female

DRUGS (4)
  1. FLEX-A-MIN [Concomitant]
  2. CALCIUM [Concomitant]
     Active Substance: CALCIUM
  3. MULTIVITAMIN [Concomitant]
     Active Substance: VITAMINS
  4. EVISTA [Suspect]
     Active Substance: RALOXIFENE HYDROCHLORIDE

REACTIONS (4)
  - Abdominal distension [Recovered/Resolved]
  - Swelling [Unknown]
  - Breast pain [Recovered/Resolved]
  - Feeling abnormal [Recovered/Resolved]
